FAERS Safety Report 7822140-7 (Version None)
Quarter: 2011Q4

REPORT INFORMATION
  Report Type: 
  Country: None (occurrence: None)
  Receive Date: 20111018
  Receipt Date: 20110301
  Transmission Date: 20120403
  Serious: No
  Sender: FDA-Public Use
  Company Number: US-ASTRAZENECA-2009UW01127

PATIENT
  Age: 80 Year
  Sex: Female
  Weight: 54 kg

DRUGS (9)
  1. SEREVENT [Concomitant]
  2. SYMBICORT [Suspect]
     Dosage: 160/4.5 MCG, TWO PUFFS,TWICE A DAY
     Route: 055
     Dates: end: 20090111
  3. DIOVAN [Concomitant]
  4. ADVAIR DISKUS 100/50 [Concomitant]
  5. SYMBICORT [Suspect]
     Indication: ASTHMA
     Dosage: 160/4.5 MCG, TWO PUFFS,TWICE A DAY
     Route: 055
     Dates: start: 20070801
  6. FOSAMAX [Concomitant]
  7. PLENDIL [Concomitant]
  8. PRAVACHOL [Concomitant]
  9. PULMICORT [Concomitant]

REACTIONS (3)
  - FEELING JITTERY [None]
  - DRY EYE [None]
  - DECREASED APPETITE [None]
